FAERS Safety Report 7771239-2 (Version None)
Quarter: 2011Q3

REPORT INFORMATION
  Report Type: 
  Country: None (occurrence: None)
  Receive Date: 20110922
  Receipt Date: 20101112
  Transmission Date: 20111222
  Serious: No
  Sender: FDA-Public Use
  Company Number: US-ASTRAZENECA-2010SE54113

PATIENT
  Sex: Male
  Weight: 104.3 kg

DRUGS (1)
  1. SEROQUEL [Suspect]
     Indication: DEPRESSION
     Route: 048

REACTIONS (5)
  - ANGER [None]
  - ANXIETY [None]
  - HOT FLUSH [None]
  - INSOMNIA [None]
  - DRUG DOSE OMISSION [None]
